FAERS Safety Report 5140575-0 (Version None)
Quarter: 2006Q4

REPORT INFORMATION
  Report Type: 
  Country: None (occurrence: None)
  Receive Date: 20061024
  Receipt Date: 20060207
  Transmission Date: 20070319
  Serious: Yes (Hospitalization)
  Sender: FDA-Public Use
  Company Number: 2006-138447-NL

PATIENT
  Sex: Male

DRUGS (1)
  1. TICE BCG [Suspect]
     Indication: BLADDER DISORDER

REACTIONS (1)
  - TUBERCULOSIS [None]
